FAERS Safety Report 9725012 (Version 1)
Quarter: 2013Q4

REPORT INFORMATION
  Report Type: Spontaneous
  Country: US (occurrence: US)
  Receive Date: 20131203
  Receipt Date: 20131203
  Transmission Date: 20140711
  Serious: No
  Sender: FDA-Public Use
  Company Number: US-009507513-1311USA012765

PATIENT
  Sex: Male

DRUGS (3)
  1. VICTRELIS [Suspect]
     Indication: HEPATITIS C
     Dosage: 4 CAPSULES THREE TIMES A DAY
     Route: 048
  2. REBETOL [Suspect]
     Route: 048
  3. PEGASYS [Suspect]

REACTIONS (2)
  - Somnolence [Not Recovered/Not Resolved]
  - Fatigue [Not Recovered/Not Resolved]
